FAERS Safety Report 26144780 (Version 1)
Quarter: 2025Q4

REPORT INFORMATION
  Report Type: Spontaneous
  Country: CH (occurrence: CH)
  Receive Date: 20251211
  Receipt Date: 20251211
  Transmission Date: 20260117
  Serious: Yes (Other)
  Sender: ROCHE
  Company Number: None

PATIENT
  Age: 56 Year
  Sex: Male

DRUGS (2)
  1. OCREVUS [Suspect]
     Active Substance: OCRELIZUMAB
     Indication: Relapsing-remitting multiple sclerosis
     Dates: start: 20220619, end: 20220922
  2. OCREVUS [Suspect]
     Active Substance: OCRELIZUMAB
     Dates: start: 20230411, end: 20230506

REACTIONS (2)
  - Eosinophilic fasciitis [Unknown]
  - Condition aggravated [Unknown]
